FAERS Safety Report 18174604 (Version 1)
Quarter: 2020Q3

REPORT INFORMATION
  Report Type: Spontaneous
  Country: AU (occurrence: AU)
  Receive Date: 20200820
  Receipt Date: 20200820
  Transmission Date: 20201103
  Serious: Yes (Hospitalization, Other)
  Sender: FDA-Public Use
  Company Number: AU-MYLANLABS-2020M1071514

PATIENT
  Sex: Male
  Weight: 180 kg

DRUGS (1)
  1. CLOZARIL [Suspect]
     Active Substance: CLOZAPINE
     Indication: SCHIZOPHRENIA
     Dosage: 250 MILLIGRAM
     Route: 048
     Dates: start: 19980421

REACTIONS (4)
  - Joint injury [Unknown]
  - Pneumonia [Unknown]
  - Mobility decreased [Unknown]
  - Infection [Unknown]
